FAERS Safety Report 15587809 (Version 3)
Quarter: 2019Q1

REPORT INFORMATION
  Report Type: Spontaneous
  Country: US (occurrence: US)
  Receive Date: 20181105
  Receipt Date: 20190319
  Transmission Date: 20190417
  Serious: No
  Sender: FDA-Public Use
  Company Number: US-PFIZER INC-2018437644

PATIENT
  Age: 40 Year
  Sex: Female
  Weight: 49.9 kg

DRUGS (7)
  1. NORTRIPTYLINE [Concomitant]
     Active Substance: NORTRIPTYLINE
     Indication: NEURALGIA
     Dosage: 50 MG, 1X/DAY (10 MG, FIVE CAPSULES ONCE A DAY)
  2. LYRICA CR [Suspect]
     Active Substance: PREGABALIN
     Indication: FIBROMYALGIA
     Dosage: 330 MG, 1X/DAY [TWO TABLETS/ TOGETHER] [EVERY EVENING]
     Route: 048
  3. BACLOFEN. [Concomitant]
     Active Substance: BACLOFEN
     Indication: MUSCLE RELAXANT THERAPY
     Dosage: 20 MG, 4X/DAY ( TABLETS FOUR TIMES A DAY )
  4. ZOLPIDEM [ZOLPIDEM TARTRATE] [Concomitant]
     Indication: SLEEP DISORDER
     Dosage: 6.25 MG, 1X/DAY [AT BEDTIME]
  5. LYRICA CR [Suspect]
     Active Substance: PREGABALIN
     Dosage: 330 MG AND 82.5 MG
  6. LORAZEPAM. [Concomitant]
     Active Substance: LORAZEPAM
     Indication: ANXIETY
     Dosage: 1 MG, 3X/DAY
  7. LYRICA CR [Suspect]
     Active Substance: PREGABALIN
     Dosage: 165 MG, 2X/DAY [SEPARATING THEM BY AN HOUR]
     Route: 048

REACTIONS (3)
  - Abdominal discomfort [Recovered/Resolved]
  - Abdominal pain upper [Recovered/Resolved]
  - Intentional product misuse [Unknown]

NARRATIVE: CASE EVENT DATE: 201809
